FAERS Safety Report 5615391-3 (Version None)
Quarter: 2008Q1

REPORT INFORMATION
  Report Type: 
  Country: None (occurrence: None)
  Receive Date: 20080131
  Receipt Date: 20080115
  Transmission Date: 20080703
  Serious: Yes (Death)
  Sender: FDA-Public Use
  Company Number: 2007JP004959

PATIENT
  Age: 84 Year
  Sex: Female
  Weight: 51.4 kg

DRUGS (11)
  1. TACROLIMUS [Suspect]
     Indication: RHEUMATOID ARTHRITIS
     Dosage: 1.5 MG, UID/QD, ORAL
     Route: 048
     Dates: start: 20061003, end: 20061113
  2. PREDNISOLONE TAB [Suspect]
     Indication: RHEUMATOID ARTHRITIS
     Dosage: 17.5 MG, UNKNOWN/D, ORAL
     Route: 048
     Dates: start: 20060401, end: 20061113
  3. METFORMIN HYDROCHLORIDE [Concomitant]
  4. LANSOPRAZOLE [Concomitant]
  5. FOSAMAC (ALENDRONATE SODIUM) [Concomitant]
  6. SOL MEDROL (METHYLPREDNISOLONE, SUCCINATE SODIUM) [Concomitant]
  7. BAKTAR (SULFAMETHOXAZOLE, TRIMETHOPRIM) [Concomitant]
  8. DENOSINE (GANCICLOVIR) [Concomitant]
  9. PACYL (ISOXICAM) [Concomitant]
  10. FUNGUARD (MICAFUNGIN) [Concomitant]
  11. INSULIN HUMAN (INSULIN HUMAN) [Concomitant]

REACTIONS (3)
  - GLUCOSE URINE PRESENT [None]
  - HYPOURICAEMIA [None]
  - PNEUMOCYSTIS JIROVECI PNEUMONIA [None]
